FAERS Safety Report 7432992-0 (Version None)
Quarter: 2011Q2

REPORT INFORMATION
  Report Type: 
  Country: None (occurrence: None)
  Receive Date: 20110422
  Receipt Date: 20110413
  Transmission Date: 20111010
  Serious: Yes (Hospitalization)
  Sender: FDA-Public Use
  Company Number: US-JNJFOC-20110401103

PATIENT
  Sex: Female
  Weight: 68 kg

DRUGS (4)
  1. INVESTIGATIONAL DRUG [Suspect]
     Indication: IMMUNISATION
     Route: 030
  2. FOLIC ACID [Concomitant]
     Indication: SICKLE CELL ANAEMIA
  3. IBUPROFEN [Suspect]
     Indication: SICKLE CELL ANAEMIA
     Route: 048
  4. MS CONTIN [Suspect]
     Indication: SICKLE CELL ANAEMIA

REACTIONS (7)
  - RESPIRATORY FAILURE [None]
  - HYPOCALCAEMIA [None]
  - RENAL FAILURE [None]
  - UNRESPONSIVE TO STIMULI [None]
  - SUICIDE ATTEMPT [None]
  - MULTIPLE DRUG OVERDOSE [None]
  - ACUTE CHEST SYNDROME [None]
